FAERS Safety Report 8433116-3 (Version None)
Quarter: 2012Q2

REPORT INFORMATION
  Report Type: 
  Country: None (occurrence: None)
  Receive Date: 20120607
  Receipt Date: 20120530
  Transmission Date: 20120825
  Serious: Yes (Hospitalization)
  Sender: FDA-Public Use
  Company Number: 2012ST000485

PATIENT
  Age: 21 Year
  Sex: Female

DRUGS (4)
  1. VINCRISTINE SULFATE [Suspect]
     Indication: ACUTE LYMPHOCYTIC LEUKAEMIA
  2. ONCASPAR [Suspect]
     Indication: ACUTE LYMPHOCYTIC LEUKAEMIA
  3. DAUNORUBICIN HCL [Suspect]
     Indication: ACUTE LYMPHOCYTIC LEUKAEMIA
  4. PREDNISONE TAB [Suspect]
     Indication: ACUTE LYMPHOCYTIC LEUKAEMIA

REACTIONS (14)
  - ASTHENIA [None]
  - NAUSEA [None]
  - HEPATOTOXICITY [None]
  - FATIGUE [None]
  - HEPATIC STEATOSIS [None]
  - PANCREATITIS [None]
  - ACTIVITIES OF DAILY LIVING IMPAIRED [None]
  - ABDOMINAL PAIN [None]
  - MOBILITY DECREASED [None]
  - CHOLELITHIASIS [None]
  - CHOLANGITIS [None]
  - HYPERGLYCAEMIA [None]
  - HYPERBILIRUBINAEMIA [None]
  - MALNUTRITION [None]
